FAERS Safety Report 6039367-X (Version None)
Quarter: 2009Q1

REPORT INFORMATION
  Report Type: 
  Country: None (occurrence: None)
  Receive Date: 20090114
  Receipt Date: 20090106
  Transmission Date: 20090719
  Serious: Yes (Other)
  Sender: FDA-Public Use
  Company Number: GXKR2009CH00499

PATIENT
  Sex: Female

DRUGS (2)
  1. BILOL (NGX) (BISOPROLOL) FILM-COATED TABLET [Suspect]
     Dosage: ORAL
     Route: 048
  2. CALCIUM (CALCIUM) [Concomitant]

REACTIONS (1)
  - HYPERPARATHYROIDISM [None]
